FAERS Safety Report 5313459-2 (Version None)
Quarter: 2007Q2

REPORT INFORMATION
  Report Type: 
  Country: None (occurrence: None)
  Receive Date: 20070501
  Receipt Date: 20070424
  Transmission Date: 20071010
  Serious: Yes (Death, Hospitalization)
  Sender: FDA-Public Use
  Company Number: FR-AVENTIS-200710959FR

PATIENT
  Age: 66 Year
  Sex: Male
  Weight: 99 kg

DRUGS (4)
  1. TAXOTERE [Suspect]
     Route: 042
     Dates: start: 20070226, end: 20070226
  2. CISPLATIN [Suspect]
     Route: 042
     Dates: start: 20070226, end: 20070226
  3. ANTIINFLAMMATORY/ANTIRHEUMATIC PRODUCTS [Suspect]
  4. COTAREG [Concomitant]

REACTIONS (3)
  - DEHYDRATION [None]
  - DIARRHOEA [None]
  - RENAL FAILURE [None]
